FAERS Safety Report 5700590-2 (Version None)
Quarter: 2008Q2

REPORT INFORMATION
  Report Type: 
  Country: None (occurrence: None)
  Receive Date: 20080407
  Receipt Date: 20080331
  Transmission Date: 20081010
  Serious: Yes (Other)
  Sender: FDA-Public Use
  Company Number: 2008SP005496

PATIENT
  Age: 51 Year
  Sex: Male

DRUGS (7)
  1. RIBAVIRIN [Suspect]
     Indication: HEPATITIS C
     Dosage: PO
     Route: 048
     Dates: start: 20071016, end: 20071213
  2. INTERFERON ALFA       (MANUFACTURER UNKNOWN) [Suspect]
     Indication: HEPATITIS C
     Dosage: SC
     Route: 058
     Dates: start: 20071201, end: 20071201
  3. PROCRIT [Suspect]
     Indication: ANAEMIA
     Dosage: 40000 IU;QW; SC
     Route: 058
     Dates: start: 20071214, end: 20080122
  4. FLUOXETINE [Concomitant]
  5. LEVITRA [Concomitant]
  6. OMEPRAZOLE [Concomitant]
  7. ABILIFY [Concomitant]

REACTIONS (4)
  - ANAEMIA [None]
  - APLASIA PURE RED CELL [None]
  - DRUG INEFFECTIVE [None]
  - NEUTRALISING ANTIBODIES POSITIVE [None]
